FAERS Safety Report 5724663-3 (Version None)
Quarter: 2008Q2

REPORT INFORMATION
  Report Type: 
  Country: None (occurrence: None)
  Receive Date: 20080428
  Receipt Date: 20080414
  Transmission Date: 20081010
  Serious: Yes (Other)
  Sender: FDA-Public Use
  Company Number: 2008S1006232

PATIENT
  Age: 64 Year
  Sex: Male

DRUGS (3)
  1. WARFARIN SODIUM [Suspect]
     Indication: ATRIAL FIBRILLATION
     Dosage: 45 MG, ORAL
     Route: 048
     Dates: start: 19981106
  2. DIGOXIN [Concomitant]
  3. SIMVASTAITN (SIMVASTATIN) [Concomitant]

REACTIONS (1)
  - DRUG EFFECT DECREASED [None]
